FAERS Safety Report 6750890-2 (Version None)
Quarter: 2010Q2

REPORT INFORMATION
  Report Type: 
  Country: None (occurrence: None)
  Receive Date: 20100602
  Receipt Date: 20100527
  Transmission Date: 20101027
  Serious: Yes (Other)
  Sender: FDA-Public Use
  Company Number: US-BAYER-201022752NA

PATIENT
  Age: 59 Year
  Sex: Female

DRUGS (1)
  1. BETASERON [Suspect]
     Indication: DRUG USE FOR UNKNOWN INDICATION
     Dates: start: 20100401, end: 20100401

REACTIONS (4)
  - CHAPPED LIPS [None]
  - EYE HAEMORRHAGE [None]
  - MOBILITY DECREASED [None]
  - TONGUE HAEMORRHAGE [None]
